FAERS Safety Report 4700802-8 (Version None)
Quarter: 2005Q2

REPORT INFORMATION
  Report Type: 
  Country: None (occurrence: None)
  Receive Date: 20050624
  Receipt Date: 20040507
  Transmission Date: 20051028
  Serious: Yes (Other)
  Sender: FDA-Public Use
  Company Number: 367225

PATIENT
  Sex: Female

DRUGS (1)
  1. XELODA [Suspect]
     Indication: COLORECTAL CANCER
     Dosage: 750 MG/M2

REACTIONS (3)
  - BONE MARROW DEPRESSION [None]
  - DIARRHOEA [None]
  - HEPATIC FAILURE [None]
